FAERS Safety Report 12189495 (Version 3)
Quarter: 2019Q4

REPORT INFORMATION
  Report Type: Report from Study
  Country: US (occurrence: US)
  Receive Date: 20160318
  Receipt Date: 20191224
  Transmission Date: 20200122
  Serious: No
  Sender: FDA-Public Use
  Company Number: PHHY2016US031856

PATIENT
  Age: 41 Year
  Sex: Female

DRUGS (6)
  1. OMNIPAQUE [Concomitant]
     Active Substance: IOHEXOL
     Indication: ABDOMEN SCAN
     Dosage: UNK
     Route: 065
     Dates: start: 20160201, end: 20160201
  2. POTASSIUM CHLORIDE. [Concomitant]
     Active Substance: POTASSIUM CHLORIDE
     Indication: PROPHYLAXIS
     Dosage: UNK
     Route: 065
     Dates: start: 20180720
  3. PERI-COLACE [Concomitant]
     Active Substance: CASANTHRANOL\DOCUSATE SODIUM
     Indication: CONSTIPATION
     Dosage: UNK
     Route: 065
     Dates: start: 20160201, end: 20160624
  4. BENEFIBER [Concomitant]
     Active Substance: STARCH, WHEAT
     Indication: CONSTIPATION
     Dosage: UNK
     Route: 065
     Dates: start: 20160201, end: 20160204
  5. GILENYA [Suspect]
     Active Substance: FINGOLIMOD HYDROCHLORIDE
     Indication: MULTIPLE SCLEROSIS
     Dosage: UNK, QD
     Route: 048
  6. LISINOPRIL. [Concomitant]
     Active Substance: LISINOPRIL
     Indication: HYPERTENSION
     Dosage: UNK
     Route: 065
     Dates: start: 20180721

REACTIONS (9)
  - Eustachian tube dysfunction [Recovered/Resolved]
  - Gastritis [Recovered/Resolved]
  - Depression [Unknown]
  - Hypercalcaemia [Recovered/Resolved]
  - Phlebitis superficial [Recovered/Resolved]
  - Contusion [Recovered/Resolved]
  - Hyperglycaemia [Recovered/Resolved]
  - Hepatic steatosis [Unknown]
  - Decreased appetite [Recovered/Resolved]

NARRATIVE: CASE EVENT DATE: 20160201
